FAERS Safety Report 17860775 (Version 4)
Quarter: 2020Q3

REPORT INFORMATION
  Report Type: Spontaneous
  Country: US (occurrence: US)
  Receive Date: 20200604
  Receipt Date: 20200923
  Transmission Date: 20201103
  Serious: No
  Sender: FDA-Public Use
  Company Number: US-VERTEX PHARMACEUTICALS-2020-012062

PATIENT
  Age: 77 Year
  Sex: Female
  Weight: 74 kg

DRUGS (6)
  1. ESTROGEN [Concomitant]
     Active Substance: ESTROGENS
     Indication: CYSTIC FIBROSIS
  2. TRIKAFTA [Suspect]
     Active Substance: ELEXACAFTOR\IVACAFTOR\TEZACAFTOR
     Dosage: 100 MG ELEXACAFTOR/ 50 MG TEZACAFTOR/ 75 MG IVACAFTOR; TWO MORNING DOSE
     Route: 048
     Dates: start: 20200619, end: 20200817
  3. TRIKAFTA [Suspect]
     Active Substance: ELEXACAFTOR\IVACAFTOR\TEZACAFTOR
     Indication: CYSTIC FIBROSIS
     Dosage: 100 MG ELEXACAFTOR/ 50 MG TEZACAFTOR/ 75 MG IVACAFTOR; 150MG IVACAFTOR, TRADITIONAL DOSING
     Route: 048
     Dates: start: 20200517, end: 20200530
  4. TRIKAFTA [Suspect]
     Active Substance: ELEXACAFTOR\IVACAFTOR\TEZACAFTOR
     Dosage: 100 MG ELEXACAFTOR/ 50 MG TEZACAFTOR/ 75 MG IVACAFTOR; ONLY  MORNING DOSE
     Route: 048
     Dates: start: 20200531, end: 20200618
  5. ARIKAYCE [Concomitant]
     Active Substance: AMIKACIN
     Dosage: ONCE DAILY
  6. ARIKAYCE [Concomitant]
     Active Substance: AMIKACIN
     Dosage: TWICE DAILY

REACTIONS (7)
  - Colitis [Recovered/Resolved]
  - Diarrhoea [Recovered/Resolved]
  - Urticaria [Recovered/Resolved]
  - Cough [Recovered/Resolved]
  - Constipation [Unknown]
  - Chest discomfort [Recovered/Resolved]
  - Feeding disorder [Unknown]

NARRATIVE: CASE EVENT DATE: 2020
